FAERS Safety Report 10365577 (Version 1)
Quarter: 2014Q3

REPORT INFORMATION
  Report Type: Spontaneous
  Country: US (occurrence: None)
  Receive Date: 20140804
  Receipt Date: 20140804
  Transmission Date: 20150326
  Serious: Yes (Hospitalization)
  Sender: FDA-Public Use
  Company Number: SYM-2014-23529

PATIENT
  Sex: Male

DRUGS (3)
  1. ESKALITH CR [Suspect]
     Active Substance: LITHIUM CARBONATE
     Indication: PRODUCT USED FOR UNKNOWN INDICATION
     Dates: start: 20041001
  2. WELLBUTRIN XL [Suspect]
     Active Substance: BUPROPION HYDROCHLORIDE
     Indication: PRODUCT USED FOR UNKNOWN INDICATION
     Dosage: (PROLONGED-RELEASE TABLET) (BUPROPION HYDROCHLORIDE)
     Dates: start: 20041001
  3. LAMOTRIGINE (TABLET) (LAMOTRIGINE) [Suspect]
     Active Substance: LAMOTRIGINE
     Indication: CONVULSION
     Dates: start: 20120727

REACTIONS (1)
  - Investigation [None]
